FAERS Safety Report 9538688 (Version 1)
Quarter: 2013Q3

REPORT INFORMATION
  Report Type: Spontaneous
  Country: FR (occurrence: FR)
  Receive Date: 20130920
  Receipt Date: 20130920
  Transmission Date: 20140515
  Serious: Yes (Hospitalization)
  Sender: FDA-Public Use
  Company Number: PHHY2013FR104216

PATIENT
  Age: 76 Year
  Sex: Female

DRUGS (13)
  1. ACLASTA [Suspect]
     Dosage: UNK
     Route: 042
     Dates: start: 20100708
  2. TOPALGIC [Suspect]
     Dosage: 100 MG/ML, TID
     Route: 048
     Dates: end: 20100724
  3. INEXIUM [Suspect]
     Dosage: 20 MG, QD
     Route: 048
     Dates: start: 20100723, end: 20100724
  4. PERFALGAN [Suspect]
     Dosage: 4 G, QD
     Route: 042
     Dates: start: 20100724, end: 20100724
  5. DOLIPRANE [Suspect]
     Dosage: 4 G, QD
     Route: 048
     Dates: start: 20100724, end: 20100724
  6. DOLIPRANE [Suspect]
     Dosage: 3 G, QD
  7. TANGANIL [Concomitant]
  8. AVLOCARDYL [Concomitant]
  9. METFORMIN [Concomitant]
  10. EZETROL [Concomitant]
  11. EDUCTYL [Concomitant]
  12. PRIMPERAN [Concomitant]
  13. FORLAX [Concomitant]

REACTIONS (1)
  - Hepatitis [Recovered/Resolved]
